FAERS Safety Report 5839696-6 (Version None)
Quarter: 2008Q3

REPORT INFORMATION
  Report Type: 
  Country: None (occurrence: None)
  Receive Date: 20080730
  Receipt Date: 20080624
  Transmission Date: 20090109
  Serious: No
  Sender: FDA-Public Use
  Company Number: PHEH2008US05719

PATIENT
  Sex: Female

DRUGS (1)
  1. TEKTURNA [Suspect]
     Dosage: 150 MG, SOMETIMES TAKES TWO PILLS

REACTIONS (3)
  - ALOPECIA [None]
  - HEADACHE [None]
  - TINNITUS [None]
